FAERS Safety Report 19000458 (Version 1)
Quarter: 2021Q1

REPORT INFORMATION
  Report Type: Spontaneous
  Country: US (occurrence: US)
  Receive Date: 20210311
  Receipt Date: 20210311
  Transmission Date: 20210420
  Serious: No
  Sender: FDA-Public Use
  Company Number: US-ADAMAS_PHARMACEUTICALS-USA-POI0573202000627

PATIENT
  Age: 74 Year
  Sex: Female

DRUGS (9)
  1. OSMOLEX ER [Suspect]
     Active Substance: AMANTADINE
     Dates: start: 201909, end: 201909
  2. AZILECT [Concomitant]
     Active Substance: RASAGILINE MESYLATE
     Indication: PARKINSON^S DISEASE
  3. OSMOLEX ER [Suspect]
     Active Substance: AMANTADINE
     Dosage: ONE 129 MG TABLET AND ONE 193 MG TABLET
     Dates: start: 201911, end: 2020
  4. STALEVO [Concomitant]
     Active Substance: CARBIDOPA\ENTACAPONE\LEVODOPA
     Indication: PARKINSON^S DISEASE
     Dosage: THREE 100 MG TABLETS AND THREE 75 MG TABLETS (SPREAD APART BY 3 HOURS).
  5. ROPINIROLE. [Concomitant]
     Active Substance: ROPINIROLE
     Indication: PARKINSON^S DISEASE
  6. OSMOLEX ER [Suspect]
     Active Substance: AMANTADINE
     Dates: start: 201910, end: 201910
  7. LEVOTHYROXINE. [Concomitant]
     Active Substance: LEVOTHYROXINE
     Indication: HYPOTHYROIDISM
  8. OSMOLEX ER [Suspect]
     Active Substance: AMANTADINE
     Indication: PARKINSON^S DISEASE
     Dates: start: 201908, end: 201908
  9. OSMOLEX ER [Suspect]
     Active Substance: AMANTADINE
     Dates: start: 2020

REACTIONS (3)
  - Dyskinesia [Recovered/Resolved]
  - Fall [Recovering/Resolving]
  - Rash [Unknown]

NARRATIVE: CASE EVENT DATE: 201909
